FAERS Safety Report 16435842 (Version 1)
Quarter: 2019Q2

REPORT INFORMATION
  Report Type: Spontaneous
  Country: AU (occurrence: AU)
  Receive Date: 20190614
  Receipt Date: 20190614
  Transmission Date: 20190711
  Serious: Yes (Other)
  Sender: FDA-Public Use
  Company Number: AU-MYLANLABS-2019M1056355

PATIENT
  Age: 8 Month
  Sex: Male

DRUGS (2)
  1. HYDROCORTISONE. [Suspect]
     Active Substance: HYDROCORTISONE
     Indication: DERMATITIS ATOPIC
     Route: 061
  2. METHYLPREDNISOLONE. [Suspect]
     Active Substance: METHYLPREDNISOLONE
     Indication: DERMATITIS ATOPIC
     Dosage: RECEIVED METHYLPREDNISOLONE ~3 TIMES PER WEEK.
     Route: 061

REACTIONS (3)
  - Drug ineffective [Unknown]
  - Steroid withdrawal syndrome [Recovering/Resolving]
  - Lymphadenopathy [Recovered/Resolved]
